FAERS Safety Report 4325047-5 (Version None)
Quarter: 2004Q1

REPORT INFORMATION
  Report Type: 
  Country: None (occurrence: None)
  Receive Date: 20040326
  Receipt Date: 20040326
  Transmission Date: 20041129
  Serious: Yes (Hospitalization)
  Sender: FDA-Public Use
  Company Number: None

PATIENT
  Age: 57 Year
  Sex: Male
  Weight: 77.5651 kg

DRUGS (7)
  1. QUETIAPINE 25MG [Suspect]
     Indication: ANGER
     Dosage: 25MG TID ORAL
     Route: 048
     Dates: start: 20040210, end: 20040213
  2. QUETIAPINE 25MG [Suspect]
     Indication: ANXIETY
     Dosage: 25MG TID ORAL
     Route: 048
     Dates: start: 20040210, end: 20040213
  3. HYDROXYZINE [Concomitant]
  4. IMIPRAMINE [Concomitant]
  5. DIGOXIN [Concomitant]
  6. LISINOPRIL [Concomitant]
  7. FUROSEMIDE [Concomitant]

REACTIONS (3)
  - AKATHISIA [None]
  - PARANOIA [None]
  - SELF-INJURIOUS IDEATION [None]
